FAERS Safety Report 21785650 (Version 1)
Quarter: 2022Q4

REPORT INFORMATION
  Report Type: Spontaneous
  Country: CN (occurrence: CN)
  Receive Date: 20221227
  Receipt Date: 20221227
  Transmission Date: 20230112
  Serious: Yes (Hospitalization, Other)
  Sender: FDA-Public Use
  Company Number: CN-BAYER-2022A173213

PATIENT
  Age: 74 Year
  Sex: Female
  Weight: 33 kg

DRUGS (1)
  1. XARELTO [Suspect]
     Active Substance: RIVAROXABAN
     Indication: Thrombosis prophylaxis
     Dosage: 1 DF, QD
     Route: 048
     Dates: start: 20220719, end: 20220822

REACTIONS (10)
  - Cardiac failure [Unknown]
  - Lower gastrointestinal haemorrhage [Recovering/Resolving]
  - Blood loss anaemia [Unknown]
  - Chronic gastritis [Unknown]
  - Gastrointestinal wall thickening [Unknown]
  - Melaena [Recovering/Resolving]
  - Chest discomfort [Recovering/Resolving]
  - Tachypnoea [Recovering/Resolving]
  - Prescribed underdose [Unknown]
  - Underdose [Unknown]

NARRATIVE: CASE EVENT DATE: 20220719
